FAERS Safety Report 24632070 (Version 1)
Quarter: 2024Q4

REPORT INFORMATION
  Report Type: Spontaneous
  Country: US (occurrence: US)
  Receive Date: 20241118
  Receipt Date: 20241118
  Transmission Date: 20250115
  Serious: No
  Sender: PFIZER
  Company Number: US-PFIZER INC-PV202400148823

PATIENT
  Age: 34 Year
  Sex: Female

DRUGS (1)
  1. IBRANCE [Suspect]
     Active Substance: PALBOCICLIB

REACTIONS (8)
  - Arthralgia [Unknown]
  - Arthritis [Unknown]
  - Depression [Unknown]
  - Anxiety [Unknown]
  - Constipation [Unknown]
  - Night sweats [Unknown]
  - Nausea [Unknown]
  - Hot flush [Unknown]
